FAERS Safety Report 25276401 (Version 2)
Quarter: 2025Q4

REPORT INFORMATION
  Report Type: Spontaneous
  Country: US (occurrence: US)
  Receive Date: 20250507
  Receipt Date: 20251125
  Transmission Date: 20260117
  Serious: No
  Sender: OTSUKA
  Company Number: US-MMM-Otsuka-HBDPUS0X

PATIENT
  Age: 55 Year
  Sex: Female

DRUGS (3)
  1. ABILIFY ASIMTUFII [Suspect]
     Active Substance: ARIPIPRAZOLE
     Indication: Schizophrenia
     Dosage: 960 MG
     Route: 065
  2. ABILIFY MAINTENA [Suspect]
     Active Substance: ARIPIPRAZOLE
     Indication: Schizophrenia
     Dosage: UNK
     Route: 065
  3. ABILIFY MAINTENA [Suspect]
     Active Substance: ARIPIPRAZOLE
     Dosage: UNK (RESTARTED)
     Route: 065

REACTIONS (1)
  - Activation syndrome [Unknown]
